FAERS Safety Report 8584753-7 (Version None)
Quarter: 2012Q3

REPORT INFORMATION
  Report Type: 
  Country: None (occurrence: None)
  Receive Date: 20120810
  Receipt Date: 20120731
  Transmission Date: 20120928
  Serious: Yes (Hospitalization)
  Sender: FDA-Public Use
  Company Number: FR-MILLENNIUM PHARMACEUTICALS, INC.-2012-05395

PATIENT

DRUGS (8)
  1. OXAZEPAM [Concomitant]
  2. VELCADE [Suspect]
     Indication: MYCOSIS FUNGOIDES
     Dosage: UNK
     Route: 065
     Dates: start: 20120525, end: 20120621
  3. ACEBUTOLOL [Concomitant]
  4. RAMIPRIL [Concomitant]
  5. KARDEGIC                           /00002703/ [Concomitant]
  6. ZOLPIDEM [Concomitant]
  7. FLECAINIDE ACETATE [Concomitant]
  8. DAFALGAN                           /00020001/ [Concomitant]

REACTIONS (3)
  - THROMBOCYTOPENIA [None]
  - OFF LABEL USE [None]
  - CHEST PAIN [None]
